FAERS Safety Report 5311797-0 (Version None)
Quarter: 2007Q2

REPORT INFORMATION
  Report Type: 
  Country: None (occurrence: None)
  Receive Date: 20070430
  Receipt Date: 20060327
  Transmission Date: 20071010
  Serious: No
  Sender: FDA-Public Use
  Company Number: 2006UW05281

PATIENT
  Age: 71 Year
  Sex: Female
  Weight: 72.6 kg

DRUGS (10)
  1. NEXIUM [Suspect]
     Route: 048
     Dates: end: 20060326
  2. ALPHAGAN [Concomitant]
  3. COSOPT [Concomitant]
  4. XALATAN [Concomitant]
  5. VYTORIN [Concomitant]
  6. ATENOLOL [Concomitant]
  7. NORVASC [Concomitant]
  8. DARVOCET [Concomitant]
  9. LIBRIUM [Concomitant]
  10. ADIPEX [Concomitant]

REACTIONS (1)
  - SKIN ODOUR ABNORMAL [None]
